FAERS Safety Report 20430257 (Version 1)
Quarter: 2022Q1

REPORT INFORMATION
  Report Type: Report from Study
  Country: FR (occurrence: FR)
  Receive Date: 20220204
  Receipt Date: 20220204
  Transmission Date: 20220424
  Serious: Yes (Other)
  Sender: FDA-Public Use
  Company Number: FR-SERVIER-S20004542

PATIENT

DRUGS (20)
  1. PEGASPARGASE [Suspect]
     Active Substance: PEGASPARGASE
     Indication: Acute lymphocytic leukaemia
     Dosage: 3600 IU  D6
     Route: 042
     Dates: start: 20190416, end: 20190416
  2. DEXAMETHASONE [Suspect]
     Active Substance: DEXAMETHASONE
     Indication: Acute lymphocytic leukaemia
     Dosage: 28 MG (D1 TO D5)
     Route: 048
     Dates: start: 20190411, end: 20190415
  3. DEXAMETHASONE [Suspect]
     Active Substance: DEXAMETHASONE
     Dosage: 14 MG (D6)
     Route: 048
     Dates: start: 20190416, end: 20190416
  4. CYTARABINE [Suspect]
     Active Substance: CYTARABINE
     Indication: Acute lymphocytic leukaemia
     Dosage: 5700 MG (D1-D2)
     Route: 042
     Dates: start: 20190411, end: 20190412
  5. CYTARABINE [Suspect]
     Active Substance: CYTARABINE
     Dosage: 30 MG
     Route: 037
     Dates: start: 20190415, end: 20190415
  6. TN UNSEPCIFIED [Concomitant]
     Indication: Acute lymphocytic leukaemia
     Dosage: 15 MG (D5)
     Route: 037
     Dates: start: 20190415, end: 20190415
  7. TN UNSEPCIFIED [Concomitant]
     Indication: Acute lymphocytic leukaemia
     Dosage: 15 MG
     Route: 037
     Dates: start: 20190415, end: 20190415
  8. CYTARABINE [Suspect]
     Active Substance: CYTARABINE
     Indication: Acute lymphocytic leukaemia
     Dosage: 5700 MG
     Route: 042
     Dates: start: 20190411, end: 20190412
  9. CYTARABINE [Suspect]
     Active Substance: CYTARABINE
     Dosage: 30 MG
     Route: 037
     Dates: start: 20190415, end: 20190415
  10. MITOXANTRONE HYDROCHLORIDE [Suspect]
     Active Substance: MITOXANTRONE HYDROCHLORIDE
     Indication: Acute lymphocytic leukaemia
     Dosage: 11 MG (D3-D4)
     Route: 042
     Dates: start: 20190413, end: 20190414
  11. ETOPOSIDE [Suspect]
     Active Substance: ETOPOSIDE
     Indication: Acute lymphocytic leukaemia
     Dosage: 210 MG (D3 TO D5)
     Route: 042
     Dates: start: 20190413, end: 20190415
  12. ACETAMINOPHEN [Concomitant]
     Active Substance: ACETAMINOPHEN
     Indication: Pain
     Dosage: 2800 MG
     Route: 042
     Dates: start: 20181218
  13. ACETAMINOPHEN [Concomitant]
     Active Substance: ACETAMINOPHEN
     Indication: Pyrexia
     Dosage: 2800 MG
     Route: 048
     Dates: start: 20181218
  14. HYDROXYZINE HYDROCHLORIDE [Concomitant]
     Active Substance: HYDROXYZINE HYDROCHLORIDE
     Indication: Sleep disorder
     Dosage: 25 MG
     Route: 048
     Dates: start: 20181218
  15. ONDANSETRON [Concomitant]
     Active Substance: ONDANSETRON
     Indication: Prophylaxis of nausea and vomiting
     Dosage: 24 MG
     Route: 048
     Dates: start: 20181221
  16. ONDANSETRON [Concomitant]
     Active Substance: ONDANSETRON
     Dosage: 24 MG
     Route: 042
     Dates: start: 20181221
  17. BACTRIM [Concomitant]
     Active Substance: SULFAMETHOXAZOLE\TRIMETHOPRIM
     Indication: Infection prophylaxis
     Dosage: 800 MG
     Route: 048
     Dates: start: 20181227
  18. Omeprazole arrow [Concomitant]
     Indication: Prophylaxis against gastrointestinal ulcer
     Dosage: 20 MG
     Route: 048
     Dates: start: 20181228
  19. CALCIUM [Concomitant]
     Active Substance: CALCIUM
     Indication: Prophylaxis
     Dosage: 1000 MG
     Route: 048
     Dates: start: 20181227
  20. VITAMIN K [Concomitant]
     Active Substance: PHYTONADIONE
     Indication: Coagulopathy
     Dosage: 10 MG
     Route: 042
     Dates: start: 20190109

REACTIONS (1)
  - Sepsis [Recovered/Resolved]

NARRATIVE: CASE EVENT DATE: 20190424
